FAERS Safety Report 15172519 (Version 1)
Quarter: 2018Q3

REPORT INFORMATION
  Report Type: Spontaneous
  Country: IT (occurrence: IT)
  Receive Date: 20180720
  Receipt Date: 20180720
  Transmission Date: 20181010
  Serious: Yes (Hospitalization)
  Sender: FDA-Public Use
  Company Number: IT-TEVA-306896ISR

PATIENT
  Age: 71 Year
  Sex: Male

DRUGS (2)
  1. TRAMADOLO CLORIDRATO [Suspect]
     Active Substance: TRAMADOL
     Route: 065
     Dates: start: 20110825, end: 20110901
  2. PARACETAMOLO [Suspect]
     Active Substance: ACETAMINOPHEN
     Route: 065
     Dates: start: 20110825, end: 20110901

REACTIONS (1)
  - Rash morbilliform [Recovered/Resolved]

NARRATIVE: CASE EVENT DATE: 20110901
